FAERS Safety Report 6126580-6 (Version None)
Quarter: 2009Q1

REPORT INFORMATION
  Report Type: 
  Country: None (occurrence: None)
  Receive Date: 20090320
  Receipt Date: 20090319
  Transmission Date: 20090719
  Serious: Yes (Other)
  Sender: FDA-Public Use
  Company Number: US-PFIZER INC-2009163793

PATIENT
  Sex: Female

DRUGS (2)
  1. VFEND [Suspect]
     Indication: INFECTION
     Dates: start: 20081020
  2. DRUG, UNSPECIFIED [Concomitant]

REACTIONS (1)
  - BLINDNESS [None]
